FAERS Safety Report 24933768 (Version 1)
Quarter: 2025Q1

REPORT INFORMATION
  Report Type: Report from Study
  Country: US (occurrence: US)
  Receive Date: 20250206
  Receipt Date: 20250206
  Transmission Date: 20250409
  Serious: Yes (Hospitalization)
  Sender: EXELIXIS
  Company Number: US-EXELIXIS-CABO-24074274

PATIENT
  Sex: Female
  Weight: 47.166 kg

DRUGS (6)
  1. CABOMETYX [Suspect]
     Active Substance: CABOZANTINIB S-MALATE
     Indication: Diffuse large B-cell lymphoma
     Dosage: 40 MG, QD
     Route: 048
     Dates: start: 20231121, end: 2023
  2. ALBUTEROL SULFATE [Concomitant]
     Active Substance: ALBUTEROL SULFATE
  3. SEREVENT DISKUS [Concomitant]
     Active Substance: SALMETEROL XINAFOATE
  4. PROMETHAZINE HYDROCHLORIDE [Concomitant]
     Active Substance: PROMETHAZINE HYDROCHLORIDE
  5. LISINOPRIL [Concomitant]
     Active Substance: LISINOPRIL
  6. DEXLANSOPRAZOLE [Concomitant]
     Active Substance: DEXLANSOPRAZOLE

REACTIONS (4)
  - Asthenia [Unknown]
  - Vomiting [Unknown]
  - Gait inability [Unknown]
  - Off label use [Unknown]

NARRATIVE: CASE EVENT DATE: 20230101
